FAERS Safety Report 7207233-X (Version None)
Quarter: 2010Q4

REPORT INFORMATION
  Report Type: 
  Country: None (occurrence: None)
  Receive Date: 20101230
  Receipt Date: 20101230
  Transmission Date: 20110411
  Serious: Yes (Other)
  Sender: FDA-Public Use
  Company Number: None

PATIENT
  Sex: Female
  Weight: 74.8435 kg

DRUGS (2)
  1. LEVAQUIN [Suspect]
     Indication: ASTHMA
     Dosage: 1 TAB ONCE A DAY PO
     Route: 048
  2. PREDNISONE [Concomitant]

REACTIONS (3)
  - ARTHRITIS [None]
  - JOINT SWELLING [None]
  - MOBILITY DECREASED [None]
